FAERS Safety Report 21207972 (Version 8)
Quarter: 2024Q1

REPORT INFORMATION
  Report Type: Spontaneous
  Country: US (occurrence: US)
  Receive Date: 20220812
  Receipt Date: 20240105
  Transmission Date: 20240410
  Serious: No
  Sender: FDA-Public Use
  Company Number: US-PFIZER INC-PV202200041353

PATIENT
  Age: 54 Year
  Sex: Female

DRUGS (3)
  1. IBRANCE [Suspect]
     Active Substance: PALBOCICLIB
     Dosage: 125 MG
     Dates: end: 20220819
  2. IBRANCE [Suspect]
     Active Substance: PALBOCICLIB
     Dosage: 100 MG
  3. IBRANCE [Suspect]
     Active Substance: PALBOCICLIB
     Dosage: FOR TWO WEEKS AND THEN HAS TWO WEEKS OFF

REACTIONS (6)
  - Fatigue [Unknown]
  - Stomatitis [Unknown]
  - Full blood count abnormal [Not Recovered/Not Resolved]
  - Treatment delayed [Unknown]
  - Tumour marker increased [Unknown]
  - Off label use [Unknown]
